FAERS Safety Report 17030459 (Version 1)
Quarter: 2019Q4

REPORT INFORMATION
  Report Type: Spontaneous
  Country: US (occurrence: US)
  Receive Date: 20191114
  Receipt Date: 20191114
  Transmission Date: 20200122
  Serious: No
  Sender: FDA-Public Use
  Company Number: US-ALLERGAN-1924637US

PATIENT
  Sex: Female

DRUGS (1)
  1. COMBIGAN [Suspect]
     Active Substance: BRIMONIDINE TARTRATE\TIMOLOL MALEATE
     Indication: GLAUCOMA
     Dosage: 1 GTT, BID
     Route: 047
     Dates: start: 201810, end: 201906

REACTIONS (11)
  - Fatigue [Recovering/Resolving]
  - Dry eye [Unknown]
  - Photopsia [Recovered/Resolved]
  - Visual impairment [Unknown]
  - Depressed mood [Recovered/Resolved]
  - Thrombosis [Not Recovered/Not Resolved]
  - Eye infection [Recovered/Resolved]
  - Vision blurred [Recovered/Resolved]
  - Cataract [Unknown]
  - Anxiety [Unknown]
  - Eye pain [Recovering/Resolving]

NARRATIVE: CASE EVENT DATE: 2018
